FAERS Safety Report 24282473 (Version 1)
Quarter: 2024Q3

REPORT INFORMATION
  Report Type: Spontaneous
  Country: US (occurrence: None)
  Receive Date: 20240904
  Receipt Date: 20240904
  Transmission Date: 20241017
  Serious: Yes (Hospitalization)
  Sender: Public
  Company Number: None

PATIENT
  Age: 37 Year
  Sex: Female
  Weight: 65.25 kg

DRUGS (2)
  1. PEDMARK [Suspect]
     Active Substance: SODIUM THIOSULFATE
     Indication: Toxicity to various agents
     Dosage: 34.8 G GRAM(S) DAILY INTRAVENOUS
     Route: 042
     Dates: start: 20240808, end: 20240822
  2. PEDMARK [Suspect]
     Active Substance: SODIUM THIOSULFATE
     Indication: Prophylaxis

REACTIONS (11)
  - Nausea [None]
  - Asthenia [None]
  - Vomiting [None]
  - Diarrhoea [None]
  - Loss of consciousness [None]
  - Dyskinesia [None]
  - Chest pain [None]
  - Dyspnoea [None]
  - Blood pressure increased [None]
  - Palpitations [None]
  - Haemoglobin decreased [None]

NARRATIVE: CASE EVENT DATE: 20240822
